FAERS Safety Report 7629032-7 (Version None)
Quarter: 2011Q3

REPORT INFORMATION
  Report Type: 
  Country: None (occurrence: None)
  Receive Date: 20110722
  Receipt Date: 20110713
  Transmission Date: 20111222
  Serious: Yes (Death, Hospitalization)
  Sender: FDA-Public Use
  Company Number: IE-MILLENNIUM PHARMACEUTICALS, INC.-2011-03042

PATIENT

DRUGS (3)
  1. MELPHALAN HYDROCHLORIDE [Concomitant]
     Indication: MULTIPLE MYELOMA
  2. PREDNISONE [Concomitant]
     Indication: MULTIPLE MYELOMA
  3. VELCADE [Suspect]
     Indication: MULTIPLE MYELOMA
     Dosage: 1.5 MG/M2, CYCLIC

REACTIONS (3)
  - DEATH [None]
  - INTESTINAL OBSTRUCTION [None]
  - INTESTINAL PERFORATION [None]
